FAERS Safety Report 16979576 (Version 1)
Quarter: 2019Q4

REPORT INFORMATION
  Report Type: Spontaneous
  Country: US (occurrence: US)
  Receive Date: 20191031
  Receipt Date: 20191031
  Transmission Date: 20200122
  Serious: No
  Sender: FDA-Public Use
  Company Number: US-BAYER-2019-195443

PATIENT
  Age: 76 Year
  Sex: Female

DRUGS (2)
  1. XALATAN [Concomitant]
     Active Substance: LATANOPROST
     Dosage: UNK
  2. ALEVE PM [Suspect]
     Active Substance: DIPHENHYDRAMINE HYDROCHLORIDE\NAPROXEN SODIUM
     Indication: PAIN
     Dosage: 2 DF, HS
     Route: 048

REACTIONS (2)
  - Drug ineffective [Unknown]
  - Initial insomnia [Unknown]
